FAERS Safety Report 5340828-7 (Version None)
Quarter: 2007Q2

REPORT INFORMATION
  Report Type: 
  Country: None (occurrence: None)
  Receive Date: 20070405
  Receipt Date: 20061101
  Transmission Date: 20071010
  Serious: Yes (Death)
  Sender: FDA-Public Use
  Company Number: US_0505116969

PATIENT
  Age: 16 Year
  Sex: Male
  Weight: 77.3 kg

DRUGS (2)
  1. CYMBALTA [Suspect]
     Indication: DEPRESSION
     Dosage: 60 MG, DAILY (1/D), ORAL
     Route: 048
     Dates: start: 20041126
  2. ZALEPLON [Concomitant]

REACTIONS (5)
  - COMPLETED SUICIDE [None]
  - DISTURBANCE IN ATTENTION [None]
  - FEELING JITTERY [None]
  - POOR QUALITY SLEEP [None]
  - SOCIAL AVOIDANT BEHAVIOUR [None]
